FAERS Safety Report 6277219-0 (Version None)
Quarter: 2009Q3

REPORT INFORMATION
  Report Type: 
  Country: None (occurrence: None)
  Receive Date: 20090722
  Receipt Date: 20090219
  Transmission Date: 20100115
  Serious: No
  Sender: FDA-Public Use
  Company Number: US-BRISTOL-MYERS SQUIBB COMPANY-14512545

PATIENT
  Age: 89 Year
  Sex: Male
  Weight: 63 kg

DRUGS (9)
  1. WARFARIN SODIUM [Suspect]
  2. COUMADIN [Suspect]
     Indication: CARDIOVASCULAR DISORDER
     Dosage: STARTED TEN YEARS AGO
  3. LIPITOR [Concomitant]
  4. COREG [Concomitant]
  5. ALTACE [Concomitant]
  6. FISH OIL [Concomitant]
  7. CENTRUM SILVER [Concomitant]
  8. POTASSIUM CHLORIDE [Concomitant]
  9. LASIX [Concomitant]

REACTIONS (2)
  - PRURITUS [None]
  - RASH [None]
